FAERS Safety Report 14870553 (Version 8)
Quarter: 2019Q2

REPORT INFORMATION
  Report Type: Spontaneous
  Country: US (occurrence: US)
  Receive Date: 20180509
  Receipt Date: 20190611
  Transmission Date: 20190711
  Serious: No
  Sender: FDA-Public Use
  Company Number: US-PFIZER INC-2018092001

PATIENT
  Age: 54 Year
  Sex: Male
  Weight: 78 kg

DRUGS (8)
  1. IBRANCE [Suspect]
     Active Substance: PALBOCICLIB
     Dosage: 125 MG, CYCLIC (DAILY FOR 3 WEEKS ON 1 WEEK OFF )
     Route: 048
     Dates: start: 201804
  2. XARELTO [Concomitant]
     Active Substance: RIVAROXABAN
     Indication: COAGULOPATHY
     Dosage: 20 MG, DAILY
     Route: 048
     Dates: start: 201810
  3. ATORVASTATIN [Concomitant]
     Active Substance: ATORVASTATIN
     Dosage: 20 MG, DAILY
  4. GABAPENTIN. [Concomitant]
     Active Substance: GABAPENTIN
     Indication: NEURALGIA
     Dosage: 900 MG, DAILY
     Route: 048
     Dates: start: 201808, end: 20190520
  5. SILODOSIN. [Concomitant]
     Active Substance: SILODOSIN
     Dosage: 8 MG, DAILY
  6. IBRANCE [Suspect]
     Active Substance: PALBOCICLIB
     Dosage: UNK UNK, CYCLIC [ONCE A DAY, 3 WEEKS THEN OFF FOR ONE WEEK. SOMETIMES OFF 2 WEEKS]
     Dates: start: 20180401, end: 20180930
  7. BETHANECHOL [Concomitant]
     Active Substance: BETHANECHOL
     Dosage: 50 MG, 2X/DAY
  8. IBRANCE [Suspect]
     Active Substance: PALBOCICLIB
     Indication: CHORDOMA
     Dosage: UNK
     Dates: start: 20180330, end: 2018

REACTIONS (6)
  - Product use in unapproved indication [Recovered/Resolved]
  - White blood cell count decreased [Recovered/Resolved]
  - Blood disorder [Recovered/Resolved]
  - Neoplasm progression [Recovered/Resolved]
  - Immune system disorder [Recovered/Resolved]
  - Off label use [Recovered/Resolved]

NARRATIVE: CASE EVENT DATE: 20180330
